FAERS Safety Report 5173443-9 (Version None)
Quarter: 2006Q4

REPORT INFORMATION
  Report Type: 
  Country: None (occurrence: None)
  Receive Date: 20061208
  Receipt Date: 20061208
  Transmission Date: 20070319
  Serious: Yes (Hospitalization, Other)
  Sender: FDA-Public Use
  Company Number: None

PATIENT
  Sex: Female
  Weight: 54.1 kg

DRUGS (13)
  1. BEVACIZUMAB (GENENTECH)   10MG/KG [Suspect]
     Indication: GLIOMA
     Dosage: 566MG  QOW   IV
     Route: 042
     Dates: start: 20060922
  2. BEVACIZUMAB (GENENTECH)   10MG/KG [Suspect]
     Indication: GLIOMA
     Dosage: 566MG  QOW   IV
     Route: 042
     Dates: start: 20061006
  3. BEVACIZUMAB (GENENTECH)   10MG/KG [Suspect]
     Indication: GLIOMA
     Dosage: 566MG  QOW   IV
     Route: 042
     Dates: start: 20061022
  4. IRINOTECAN (PFIZER)   340MG/M2 [Suspect]
     Indication: GLIOMA
     Dosage: 530MG  QOW   IV
     Route: 042
     Dates: start: 20060922
  5. IRINOTECAN (PFIZER)   340MG/M2 [Suspect]
     Indication: GLIOMA
     Dosage: 530MG  QOW   IV
     Route: 042
     Dates: start: 20061006
  6. IRINOTECAN (PFIZER)   340MG/M2 [Suspect]
     Indication: GLIOMA
     Dosage: 530MG  QOW   IV
     Route: 042
     Dates: start: 20061022
  7. HYDROCHLOROTHIAZIDE [Concomitant]
  8. DEXAMETHASONE [Concomitant]
  9. ACIPHEX [Concomitant]
  10. DILANTIN [Concomitant]
  11. KEPPRA [Concomitant]
  12. DEPAKOTE [Concomitant]
  13. VITAMIN AND MINERAL PRENATAL SUPPLEMENT W/ FOLIC ACID CAP [Concomitant]

REACTIONS (9)
  - APHASIA [None]
  - CONVULSION [None]
  - DISEASE PROGRESSION [None]
  - HEMIPARESIS [None]
  - MENTAL STATUS CHANGES [None]
  - PYREXIA [None]
  - REFUSAL OF TREATMENT BY PATIENT [None]
  - REFUSAL OF TREATMENT BY RELATIVE [None]
  - URINARY INCONTINENCE [None]
